FAERS Safety Report 10185324 (Version 1)
Quarter: 2014Q2

REPORT INFORMATION
  Report Type: Spontaneous
  Country: US (occurrence: US)
  Receive Date: 20140521
  Receipt Date: 20140521
  Transmission Date: 20141212
  Serious: No
  Sender: FDA-Public Use
  Company Number: US-PFIZER INC-2014136336

PATIENT
  Age: 66 Year
  Sex: Male
  Weight: 66.21 kg

DRUGS (6)
  1. GABAPENTIN [Suspect]
     Indication: VASCULITIS
     Dosage: 300 MG, 6X/DAY
     Route: 048
     Dates: start: 201310, end: 2014
  2. GABAPENTIN [Suspect]
     Dosage: 300 MG, 1X/DAY
     Route: 048
     Dates: start: 2014
  3. PREDNISONE [Concomitant]
     Dosage: UNK
  4. CALCIUM [Concomitant]
     Dosage: UNK
  5. GLUCOSAMINE [Concomitant]
     Dosage: UNK
  6. PEPCID [Concomitant]
     Indication: ANTACID THERAPY
     Dosage: UNK

REACTIONS (3)
  - Drug ineffective [Unknown]
  - Red blood cell count decreased [Unknown]
  - White blood cell count decreased [Unknown]
